FAERS Safety Report 23284000 (Version 1)
Quarter: 2023Q4

REPORT INFORMATION
  Report Type: Spontaneous
  Country: JP (occurrence: JP)
  Receive Date: 20231211
  Receipt Date: 20231211
  Transmission Date: 20240109
  Serious: Yes (Death, Life-Threatening, Other)
  Sender: FDA-Public Use
  Company Number: JP-AMGEN-JPNSP2023218659

PATIENT
  Sex: Female

DRUGS (2)
  1. BLINCYTO [Suspect]
     Active Substance: BLINATUMOMAB
     Indication: B precursor type acute leukaemia
     Dosage: 5 MICROGRAM, QD (24H DIV, CENTRAL VENOUS (CV))
     Route: 042
     Dates: start: 20231129, end: 202312
  2. THROMBOMODULIN ALFA [Concomitant]
     Active Substance: THROMBOMODULIN ALFA

REACTIONS (3)
  - Tumour lysis syndrome [Fatal]
  - B precursor type acute leukaemia [Fatal]
  - Cytokine release syndrome [Not Recovered/Not Resolved]

NARRATIVE: CASE EVENT DATE: 20230101
